FAERS Safety Report 18580754 (Version 1)
Quarter: 2020Q4

REPORT INFORMATION
  Report Type: Spontaneous
  Country: SE (occurrence: SE)
  Receive Date: 20201204
  Receipt Date: 20201204
  Transmission Date: 20210114
  Serious: Yes (Other)
  Sender: FDA-Public Use
  Company Number: SE-GILEAD-2020-0506813

PATIENT
  Age: 41 Year
  Sex: Male

DRUGS (3)
  1. DEXAMETHASONE. [Concomitant]
     Active Substance: DEXAMETHASONE
     Dates: start: 20200819, end: 20200824
  2. REMDESIVIR. [Suspect]
     Active Substance: REMDESIVIR
     Indication: COVID-19
     Dosage: KONCENTRAT TILL INFUSION, 100 MG
     Route: 042
     Dates: start: 20200818, end: 20200822
  3. COLESTYRAMINE [Concomitant]
     Active Substance: CHOLESTYRAMINE
     Dates: start: 2020

REACTIONS (3)
  - Paraesthesia [Not Recovered/Not Resolved]
  - Anxiety [Not Recovered/Not Resolved]
  - Acute stress disorder [Not Recovered/Not Resolved]

NARRATIVE: CASE EVENT DATE: 20200828
